FAERS Safety Report 16711990 (Version 1)
Quarter: 2019Q3

REPORT INFORMATION
  Report Type: Spontaneous
  Country: US (occurrence: US)
  Receive Date: 20190816
  Receipt Date: 20190816
  Transmission Date: 20191004
  Serious: Yes (Other)
  Sender: FDA-Public Use
  Company Number: US-009507513-1908USA005706

PATIENT
  Age: 67 Year
  Sex: Male

DRUGS (3)
  1. KEYTRUDA [Suspect]
     Active Substance: PEMBROLIZUMAB
     Indication: MICROSATELLITE INSTABILITY CANCER
  2. ELIQUIS [Concomitant]
     Active Substance: APIXABAN
  3. KEYTRUDA [Suspect]
     Active Substance: PEMBROLIZUMAB
     Indication: PANCREATIC CARCINOMA
     Dosage: UNK
     Route: 042
     Dates: start: 201809

REACTIONS (2)
  - Pneumonia [Recovered/Resolved]
  - Product dose omission [Unknown]

NARRATIVE: CASE EVENT DATE: 201902
